FAERS Safety Report 22093284 (Version 2)
Quarter: 2023Q2

REPORT INFORMATION
  Report Type: Report from Study
  Country: US (occurrence: US)
  Receive Date: 20230314
  Receipt Date: 20230406
  Transmission Date: 20230722
  Serious: Yes (Hospitalization, Other)
  Sender: FDA-Public Use
  Company Number: US-JNJFOC-20230214917

PATIENT
  Age: 57 Year
  Sex: Female
  Weight: 72.7 kg

DRUGS (6)
  1. EPOPROSTENOL SODIUM [Suspect]
     Active Substance: EPOPROSTENOL SODIUM
     Indication: Pulmonary arterial hypertension
     Dosage: VELETRI 1.5MG VIAL INTRAVENOUS CONTINUOUS
     Route: 042
  2. AMBRISENTAN [Concomitant]
     Active Substance: AMBRISENTAN
  3. ADCIRCA [Concomitant]
     Active Substance: TADALAFIL
  4. WARFARIN [Concomitant]
     Active Substance: WARFARIN
  5. LETAIRIS [Concomitant]
     Active Substance: AMBRISENTAN
  6. TADALAFIL [Concomitant]
     Active Substance: TADALAFIL

REACTIONS (18)
  - Pneumonia [Unknown]
  - Device occlusion [Unknown]
  - Central venous catheterisation [Unknown]
  - Diarrhoea [Unknown]
  - Influenza like illness [Unknown]
  - Erythema [Unknown]
  - Pharyngitis [Unknown]
  - Ear infection [Unknown]
  - Weight decreased [Unknown]
  - Palpitations [Unknown]
  - Fatigue [Unknown]
  - Flushing [Unknown]
  - Headache [Unknown]
  - Arthralgia [Unknown]
  - Myalgia [Unknown]
  - Device alarm issue [Unknown]
  - Underdose [Unknown]
  - Catheter site related reaction [Unknown]

NARRATIVE: CASE EVENT DATE: 20221201
